FAERS Safety Report 14823274 (Version 4)
Quarter: 2019Q3

REPORT INFORMATION
  Report Type: Spontaneous
  Country: US (occurrence: US)
  Receive Date: 20180427
  Receipt Date: 20190731
  Transmission Date: 20191004
  Serious: Yes (Hospitalization, Other)
  Sender: FDA-Public Use
  Company Number: US-ASTRAZENECA-2018SE50265

PATIENT
  Age: 18618 Day
  Sex: Female

DRUGS (29)
  1. NEXIUM [Suspect]
     Active Substance: ESOMEPRAZOLE MAGNESIUM
     Indication: GASTROOESOPHAGEAL REFLUX DISEASE
     Route: 065
  2. ROPINIROLE. [Concomitant]
     Active Substance: ROPINIROLE
  3. METFORMIN [Concomitant]
     Active Substance: METFORMIN HYDROCHLORIDE
  4. BITIN [Concomitant]
  5. NEXIUM [Suspect]
     Active Substance: ESOMEPRAZOLE MAGNESIUM
     Indication: GASTROOESOPHAGEAL REFLUX DISEASE
     Route: 048
     Dates: start: 20110829
  6. PREVACID [Suspect]
     Active Substance: LANSOPRAZOLE
     Route: 048
  7. MULTIVITAMINS [Concomitant]
     Active Substance: VITAMINS
  8. PRILOSEC [Suspect]
     Active Substance: OMEPRAZOLE MAGNESIUM
     Route: 065
  9. PRILOSEC OTC [Suspect]
     Active Substance: OMEPRAZOLE MAGNESIUM
     Route: 048
  10. FLUTICASONE. [Concomitant]
     Active Substance: FLUTICASONE
  11. ROPINIROLE. [Concomitant]
     Active Substance: ROPINIROLE
  12. MAGNESIUM OXIDE. [Concomitant]
     Active Substance: MAGNESIUM OXIDE
  13. PRILOSEC [Suspect]
     Active Substance: OMEPRAZOLE MAGNESIUM
     Route: 048
  14. DEXILANT [Suspect]
     Active Substance: DEXLANSOPRAZOLE
     Route: 048
  15. ALBUTEROL. [Concomitant]
     Active Substance: ALBUTEROL
  16. NEXIUM [Suspect]
     Active Substance: ESOMEPRAZOLE MAGNESIUM
     Indication: GASTROOESOPHAGEAL REFLUX DISEASE
     Route: 048
  17. PREVACID 24 HR [Suspect]
     Active Substance: LANSOPRAZOLE
     Route: 048
  18. PROTONIX [Suspect]
     Active Substance: PANTOPRAZOLE SODIUM
     Route: 048
  19. ONDANSETRON [Concomitant]
     Active Substance: ONDANSETRON
  20. CETRIZINE [Concomitant]
     Active Substance: CETIRIZINE HYDROCHLORIDE
  21. QUETIAPINE. [Concomitant]
     Active Substance: QUETIAPINE
  22. FUROSEMIDE. [Concomitant]
     Active Substance: FUROSEMIDE
  23. RANITIDINE. [Concomitant]
     Active Substance: RANITIDINE
  24. SERTRALINE [Concomitant]
     Active Substance: SERTRALINE HYDROCHLORIDE
  25. GABAPENTIN. [Concomitant]
     Active Substance: GABAPENTIN
  26. HYDROXYZINE [Concomitant]
     Active Substance: HYDROXYZINE HYDROCHLORIDE
  27. NEXIUM 24HR [Suspect]
     Active Substance: ESOMEPRAZOLE MAGNESIUM
     Route: 048
  28. ENDOCET [Concomitant]
     Active Substance: ACETAMINOPHEN\OXYCODONE HYDROCHLORIDE
  29. IBUPROFEN. [Concomitant]
     Active Substance: IBUPROFEN

REACTIONS (3)
  - Rebound acid hypersecretion [Unknown]
  - Chronic kidney disease [Unknown]
  - Renal failure [Not Recovered/Not Resolved]

NARRATIVE: CASE EVENT DATE: 20170310
